FAERS Safety Report 7363517-6 (Version None)
Quarter: 2011Q1

REPORT INFORMATION
  Report Type: 
  Country: None (occurrence: None)
  Receive Date: 20110321
  Receipt Date: 20110315
  Transmission Date: 20110831
  Serious: Yes (Death, Life-Threatening, Hospitalization, Other)
  Sender: FDA-Public Use
  Company Number: NZ-BAYER-201038563GPV

PATIENT
  Sex: Male
  Weight: 51.6 kg

DRUGS (10)
  1. NADOLOL [Concomitant]
     Indication: CARDIOVASCULAR DISORDER
     Dosage: 40 MG (DAILY DOSE), ,
     Dates: start: 20100809
  2. NEXAVAR [Suspect]
     Indication: HEPATIC NEOPLASM MALIGNANT
     Dosage: 400 MG, QD
     Route: 048
     Dates: start: 20100913, end: 20101104
  3. SPIRONOLACTONE [Concomitant]
     Indication: ASCITES
     Dosage: 200 MG (DAILY DOSE), ,
     Dates: start: 20100809
  4. ALBUMEX 20 [Concomitant]
     Dosage: 2 UNITS
     Dates: start: 20100809
  5. FRUSEMIDE [Concomitant]
     Indication: ASCITES
     Dosage: 120 MG (DAILY DOSE), ,
     Dates: start: 20100809
  6. PLACEBO (12917) [Suspect]
     Indication: HEPATIC NEOPLASM MALIGNANT
     Dosage: 100 MG, QD
     Route: 048
     Dates: start: 20100913, end: 20101104
  7. PLACEBO (12917) [Suspect]
     Dosage: 100 MG, QD
     Route: 048
     Dates: start: 20101105, end: 20101108
  8. NADOLOL [Concomitant]
     Indication: ASCITES
  9. NEXAVAR [Suspect]
     Dosage: 400 MG, QD
     Route: 048
     Dates: start: 20101105, end: 20101108
  10. FORTISIP [Concomitant]
     Indication: MEDICAL DIET
     Dosage: 2 CANS

REACTIONS (5)
  - HYPONATRAEMIA [None]
  - HAEMATEMESIS [None]
  - ASCITES [None]
  - ENCEPHALOPATHY [None]
  - OESOPHAGEAL VARICES HAEMORRHAGE [None]
